FAERS Safety Report 13819300 (Version 1)
Quarter: 2017Q3

REPORT INFORMATION
  Report Type: Spontaneous
  Country: US (occurrence: US)
  Receive Date: 20170731
  Receipt Date: 20170731
  Transmission Date: 20171127
  Serious: Yes (Disabling)
  Sender: FDA-Public Use
  Company Number: None

PATIENT
  Age: 33 Year
  Sex: Male
  Weight: 83.25 kg

DRUGS (13)
  1. BUPROPION HCL SR 150MG [Suspect]
     Active Substance: BUPROPION HYDROCHLORIDE
     Indication: ANXIETY
     Dosage: ?          QUANTITY:2 TABLET(S);?
     Route: 048
     Dates: start: 20170115, end: 20170729
  2. VITAMIN B6 [Concomitant]
     Active Substance: PYRIDOXINE HYDROCHLORIDE
  3. MAGNESIUM [Concomitant]
     Active Substance: MAGNESIUM
  4. PROBIOTIC [Concomitant]
     Active Substance: PROBIOTICS NOS
  5. PRAVASTATIN. [Concomitant]
     Active Substance: PRAVASTATIN
  6. ANTIHISTAMINE [Concomitant]
     Active Substance: ANTIHISTAMINES NOS
  7. NOOTROBOX RISE (BACOPA MONNIERI, RHODIOLA ROSEA, + ALPHA-GPC) [Concomitant]
  8. BUPROPION HCL SR 150MG [Suspect]
     Active Substance: BUPROPION HYDROCHLORIDE
     Indication: DEPRESSION
     Dosage: ?          QUANTITY:2 TABLET(S);?
     Route: 048
     Dates: start: 20170115, end: 20170729
  9. VITAMIN E [Concomitant]
     Active Substance: .ALPHA.-TOCOPHEROL
  10. FISH OIL [Concomitant]
     Active Substance: FISH OIL
  11. TESTOSTERONE. [Concomitant]
     Active Substance: TESTOSTERONE
  12. DECONGESTANT [Concomitant]
     Active Substance: UNSPECIFIED INGREDIENT
  13. VITAMIN D [Concomitant]
     Active Substance: CHOLECALCIFEROL

REACTIONS (4)
  - Depression [None]
  - Suicide attempt [None]
  - Product quality issue [None]
  - Product odour abnormal [None]

NARRATIVE: CASE EVENT DATE: 20170729
